FAERS Safety Report 5350426-7 (Version None)
Quarter: 2007Q2

REPORT INFORMATION
  Report Type: 
  Country: None (occurrence: None)
  Receive Date: 20070608
  Receipt Date: 20070530
  Transmission Date: 20071010
  Serious: Yes (Life-Threatening)
  Sender: FDA-Public Use
  Company Number: HQWYE421530MAY07

PATIENT
  Age: 64 Year
  Sex: Female

DRUGS (1)
  1. PANTOPRAZOLE SODIUM [Suspect]
     Dosage: ^10 ML PANTOPRAZOLE IV 40 MG^
     Route: 042
     Dates: start: 20070502, end: 20070502

REACTIONS (3)
  - DYSPNOEA [None]
  - FLUSHING [None]
  - HYPERTENSIVE CRISIS [None]
